FAERS Safety Report 5846139-5 (Version None)
Quarter: 2008Q3

REPORT INFORMATION
  Report Type: 
  Country: None (occurrence: None)
  Receive Date: 20080814
  Receipt Date: 20080807
  Transmission Date: 20090109
  Serious: Yes (Disabling)
  Sender: FDA-Public Use
  Company Number: PT-PFIZER INC-2008066735

PATIENT
  Age: 40 Year
  Sex: Female

DRUGS (5)
  1. ZARATOR [Suspect]
     Route: 048
  2. DIAZEPAM [Concomitant]
     Route: 048
  3. FLUOXETINE HCL [Concomitant]
     Route: 048
  4. CLAVAMOX DT [Concomitant]
     Route: 048
  5. AULIN [Concomitant]
     Route: 048

REACTIONS (3)
  - ANOREXIA [None]
  - ATAXIA [None]
  - MUSCLE FATIGUE [None]
